FAERS Safety Report 14573604 (Version 1)
Quarter: 2018Q1

REPORT INFORMATION
  Report Type: Spontaneous
  Country: US (occurrence: US)
  Receive Date: 20180226
  Receipt Date: 20180226
  Transmission Date: 20180509
  Serious: No
  Sender: FDA-Public Use
  Company Number: US-MISSION PHARMACAL COMPANY-2042574

PATIENT
  Age: 23 Year
  Sex: Male

DRUGS (2)
  1. UROCIT-K [Concomitant]
     Active Substance: POTASSIUM CITRATE
     Route: 065
  2. THIOLA [Suspect]
     Active Substance: TIOPRONIN
     Indication: CYSTINURIA
     Route: 065
     Dates: start: 20171222

REACTIONS (3)
  - Vomiting [Unknown]
  - Dyspnoea [Unknown]
  - Nausea [Unknown]
